FAERS Safety Report 6490308-0 (Version None)
Quarter: 2009Q4

REPORT INFORMATION
  Report Type: 
  Country: None (occurrence: None)
  Receive Date: 20091210
  Receipt Date: 20091210
  Transmission Date: 20100525
  Serious: Yes (Life-Threatening)
  Sender: FDA-Public Use
  Company Number: None

PATIENT
  Sex: Female
  Weight: 83.9154 kg

DRUGS (2)
  1. CHANTIX [Suspect]
     Indication: SMOKING CESSATION THERAPY
     Dosage: 1 TABLET BY MOUTH TWICE DAILY
     Dates: start: 20091101, end: 20091204
  2. VARENICLINE [Concomitant]

REACTIONS (4)
  - BLOOD PRESSURE INCREASED [None]
  - EYE HAEMORRHAGE [None]
  - HEADACHE [None]
  - PALPITATIONS [None]
